FAERS Safety Report 10900227 (Version 1)
Quarter: 2015Q1

REPORT INFORMATION
  Report Type: Spontaneous
  Country: US (occurrence: US)
  Receive Date: 20150310
  Receipt Date: 20150310
  Transmission Date: 20150721
  Serious: Yes (Hospitalization)
  Sender: FDA-Public Use
  Company Number: US-JNJFOC-20150220306

PATIENT
  Age: 83 Year
  Sex: Male
  Weight: 58.97 kg

DRUGS (2)
  1. MYLANTA GAS MAXIMUM STRENGTH [Suspect]
     Active Substance: DIMETHICONE
     Indication: GASTROOESOPHAGEAL REFLUX DISEASE
     Route: 048
     Dates: start: 20150217, end: 20150217
  2. MYLANTA GAS MAXIMUM STRENGTH [Suspect]
     Active Substance: DIMETHICONE
     Indication: HYPERCHLORHYDRIA
     Route: 048
     Dates: start: 20150217, end: 20150217

REACTIONS (3)
  - Blood pressure increased [Recovered/Resolved]
  - Drug ineffective [Unknown]
  - Product quality issue [None]

NARRATIVE: CASE EVENT DATE: 20150217
